FAERS Safety Report 23994990 (Version 1)
Quarter: 2024Q2

REPORT INFORMATION
  Report Type: Spontaneous
  Country: RO (occurrence: RO)
  Receive Date: 20240620
  Receipt Date: 20240620
  Transmission Date: 20240716
  Serious: Yes (Other)
  Sender: FDA-Public Use
  Company Number: RO-AMGEN-ROUSP2024108441

PATIENT
  Age: 65 Year
  Sex: Male

DRUGS (4)
  1. LEUCOVORIN [Suspect]
     Active Substance: LEUCOVORIN\LEUCOVORIN CALCIUM
     Indication: Colorectal cancer metastatic
     Dosage: UNK?ROUTE OF ADMIN: INTRAVENOUS USE
     Dates: start: 20220831
  2. OXALIPLATIN [Suspect]
     Active Substance: OXALIPLATIN
     Indication: Colorectal cancer metastatic
     Dosage: UNK?ROUTE OF ADMIN: INTRAVENOUS USE
     Dates: start: 20220831
  3. FLUOROURACIL [Suspect]
     Active Substance: FLUOROURACIL
     Indication: Colorectal cancer metastatic
     Dosage: UNK
     Route: 042
     Dates: start: 20220831
  4. VECTIBIX [Suspect]
     Active Substance: PANITUMUMAB
     Indication: Colorectal cancer metastatic
     Dosage: 14 CHEMOTHERAPY SERIES AND 6MG/KG?ROUTE OF ADMIN: INTRAVENOUS?FORM OF ADMIN: SOLUTION FOR INJECTION
     Route: 042
     Dates: start: 20220831

REACTIONS (3)
  - Ileostomy closure [Unknown]
  - Intestinal resection [Unknown]
  - Skin toxicity [Recovering/Resolving]

NARRATIVE: CASE EVENT DATE: 20221012
